FAERS Safety Report 13069168 (Version 1)
Quarter: 2016Q4

REPORT INFORMATION
  Report Type: Spontaneous
  Country: US (occurrence: US)
  Receive Date: 20161228
  Receipt Date: 20161228
  Transmission Date: 20170207
  Serious: No
  Sender: FDA-Public Use
  Company Number: US-PFIZER INC-2016590387

PATIENT
  Sex: Male

DRUGS (1)
  1. XELJANZ XR [Suspect]
     Active Substance: TOFACITINIB CITRATE
     Dosage: 11 MG, UNK

REACTIONS (26)
  - Decreased appetite [Unknown]
  - Amnesia [Unknown]
  - Depression [Unknown]
  - Swelling [Unknown]
  - Neck pain [Unknown]
  - Migraine [Unknown]
  - Dizziness [Unknown]
  - Hyperhidrosis [Unknown]
  - Myalgia [Unknown]
  - Fatigue [Unknown]
  - Tinnitus [Unknown]
  - Dyspepsia [Unknown]
  - Headache [Unknown]
  - Asthenia [Unknown]
  - Sleep disorder [Unknown]
  - Synovitis [Unknown]
  - Sinusitis [Unknown]
  - Back pain [Unknown]
  - Dry eye [Unknown]
  - Urine flow decreased [Unknown]
  - Anxiety [Unknown]
  - Arthralgia [Unknown]
  - Musculoskeletal stiffness [Unknown]
  - Tenderness [Unknown]
  - Exercise tolerance decreased [Unknown]
  - Epistaxis [Unknown]
